FAERS Safety Report 18730456 (Version 2)
Quarter: 2021Q1

REPORT INFORMATION
  Report Type: Other
  Country: US (occurrence: US)
  Receive Date: 20210112
  Receipt Date: 20210125
  Transmission Date: 20210419
  Serious: No
  Sender: FDA-Public Use
  Company Number: US-ROCHE-2745807

PATIENT
  Sex: Male
  Weight: 14.05 kg

DRUGS (26)
  1. NUTROPIN [Suspect]
     Active Substance: SOMATROPIN
  2. FUROSEMIDE. [Concomitant]
     Active Substance: FUROSEMIDE
     Dosage: 0.5 MG/KG/HR
  3. OMEPRAZOLE. [Concomitant]
     Active Substance: OMEPRAZOLE
     Route: 048
  4. NUTROPIN [Suspect]
     Active Substance: SOMATROPIN
     Indication: END STAGE RENAL DISEASE
  5. LOVAZA [Concomitant]
     Active Substance: OMEGA-3-ACID ETHYL ESTERS
     Route: 048
  6. HYDROCORTISONE. [Concomitant]
     Active Substance: HYDROCORTISONE
     Route: 042
  7. ENALAPRIL [Concomitant]
     Active Substance: ENALAPRIL
     Dosage: 1 MG/ML
  8. FERROUS SULFATE. [Concomitant]
     Active Substance: FERROUS SULFATE
     Dosage: 6 REFILLS
  9. ASPIRIN. [Concomitant]
     Active Substance: ASPIRIN
     Route: 048
  10. ISRADIPINE. [Concomitant]
     Active Substance: ISRADIPINE
     Dosage: 1 MG/1 ML
  11. NUTROPIN [Suspect]
     Active Substance: SOMATROPIN
  12. GENTAMICIN. [Concomitant]
     Active Substance: GENTAMICIN
     Route: 061
  13. NEPHRONEX [Concomitant]
     Route: 048
  14. CALCITRIOL. [Concomitant]
     Active Substance: CALCITRIOL
     Dosage: 1 MCG
     Route: 048
  15. DOPAMINE [Concomitant]
     Active Substance: DOPAMINE HYDROCHLORIDE
     Dosage: 20 MCG/KG/MIN
  16. PHENOBARBITAL. [Concomitant]
     Active Substance: PHENOBARBITAL
     Route: 042
  17. ZOSYN [Concomitant]
     Active Substance: PIPERACILLIN SODIUM\TAZOBACTAM SODIUM
     Route: 042
  18. PANTOPRAZOLE [Concomitant]
     Active Substance: PANTOPRAZOLE
     Route: 042
  19. EPOGEN [Concomitant]
     Active Substance: ERYTHROPOIETIN
     Dosage: 20000 UNITS
     Route: 058
  20. HEPARIN [Concomitant]
     Active Substance: HEPARIN SODIUM
     Dosage: 1000 MG
  21. NUTROPIN [Suspect]
     Active Substance: SOMATROPIN
     Indication: SHORT STATURE
  22. NUTROPIN [Suspect]
     Active Substance: SOMATROPIN
  23. CINACALCET. [Concomitant]
     Active Substance: CINACALCET
     Route: 048
  24. NUTROPIN [Suspect]
     Active Substance: SOMATROPIN
     Indication: HYPOTHYROIDISM
     Route: 058
  25. ALBUTEROL. [Concomitant]
     Active Substance: ALBUTEROL
     Dosage: 25 MG/ML
     Route: 055
  26. CLONIDINE. [Concomitant]
     Active Substance: CLONIDINE
     Dosage: PATCH

REACTIONS (3)
  - Leukocytosis [Unknown]
  - Muscle atrophy [Unknown]
  - Hypercalcaemia [Unknown]
